FAERS Safety Report 5878318-5 (Version None)
Quarter: 2008Q3

REPORT INFORMATION
  Report Type: 
  Country: None (occurrence: None)
  Receive Date: 20080911
  Receipt Date: 20080904
  Transmission Date: 20090109
  Serious: Yes (Other)
  Sender: FDA-Public Use
  Company Number: US-PFIZER INC-2008074363

PATIENT
  Sex: Male

DRUGS (4)
  1. LIPITOR [Suspect]
  2. VYTORIN [Concomitant]
  3. ZOCOR [Concomitant]
  4. ZETIA [Concomitant]

REACTIONS (5)
  - ARTERIOSCLEROSIS [None]
  - BLOOD CHOLESTEROL INCREASED [None]
  - CARDIAC MYXOMA [None]
  - CATHETERISATION CARDIAC [None]
  - LOW DENSITY LIPOPROTEIN INCREASED [None]
